FAERS Safety Report 5218135-2 (Version None)
Quarter: 2007Q1

REPORT INFORMATION
  Report Type: 
  Country: None (occurrence: None)
  Receive Date: 20061130
  Receipt Date: 20051128
  Transmission Date: 20070707
  Serious: Yes (Hospitalization)
  Sender: FDA-Public Use
  Company Number: US_0507120048

PATIENT
  Age: 52 Year
  Sex: Female
  Weight: 116.4 kg

DRUGS (7)
  1. ZYPREXA [Suspect]
     Indication: BIPOLAR DISORDER
     Dosage: SEE IMAGE
     Route: 048
     Dates: start: 19980101
  2. RISPERDAL [Concomitant]
  3. GEODON [Concomitant]
  4. MONOPRIL [Concomitant]
  5. SEROQUEL [Concomitant]
  6. LOPRESSOR [Concomitant]
  7. LISINOPRIL [Concomitant]

REACTIONS (2)
  - DIABETES MELLITUS [None]
  - INTENTIONAL OVERDOSE [None]
